FAERS Safety Report 4700627-3 (Version None)
Quarter: 2005Q2

REPORT INFORMATION
  Report Type: 
  Country: None (occurrence: None)
  Receive Date: 20050627
  Receipt Date: 20050304
  Transmission Date: 20051028
  Serious: Yes (Hospitalization)
  Sender: FDA-Public Use
  Company Number: PAR_0045_2005

PATIENT
  Age: 84 Year
  Sex: Female

DRUGS (5)
  1. ISOPTIN [Suspect]
     Indication: ESSENTIAL HYPERTENSION
     Dosage: 240 MG QDAY PO
     Route: 048
     Dates: end: 20050122
  2. KLACID [Suspect]
     Dosage: 500 MG BID
     Dates: start: 20050113, end: 20050122
  3. ASPIRIN [Concomitant]
  4. TORSEMIDE [Concomitant]
  5. RAMIPRIL [Concomitant]

REACTIONS (12)
  - ANAEMIA [None]
  - AORTIC STENOSIS [None]
  - ATRIOVENTRICULAR BLOCK COMPLETE [None]
  - BLOOD PRESSURE DECREASED [None]
  - FALL [None]
  - HEART RATE DECREASED [None]
  - INFECTION [None]
  - INFLAMMATION [None]
  - MITRAL VALVE INCOMPETENCE [None]
  - MULTIPLE MYELOMA [None]
  - RENAL FAILURE [None]
  - TRICUSPID VALVE INCOMPETENCE [None]
